FAERS Safety Report 17048532 (Version 2)
Quarter: 2019Q4

REPORT INFORMATION
  Report Type: Report from Study
  Country: US (occurrence: US)
  Receive Date: 20191119
  Receipt Date: 20191122
  Transmission Date: 20200122
  Serious: Yes (Death, Other)
  Sender: FDA-Public Use
  Company Number: US-PFIZER INC-HQWYE303912MAY06

PATIENT
  Age: 37 Year
  Sex: Male

DRUGS (1)
  1. AMIODARONE HCL [Suspect]
     Active Substance: AMIODARONE HYDROCHLORIDE
     Dosage: 1100 MG, 1X/DAY

REACTIONS (6)
  - Pulmonary toxicity [Fatal]
  - Dyspnoea [Fatal]
  - Pulmonary alveolar haemorrhage [Fatal]
  - Pneumonitis [Fatal]
  - Cough [Fatal]
  - Pyrexia [Fatal]
